FAERS Safety Report 25125302 (Version 3)
Quarter: 2025Q2

REPORT INFORMATION
  Report Type: Spontaneous
  Country: US (occurrence: US)
  Receive Date: 20250326
  Receipt Date: 20250424
  Transmission Date: 20250716
  Serious: No
  Sender: DR REDDYS
  Company Number: US-DRL-USA-USA/2025/03/004125

PATIENT
  Age: 25 Year
  Sex: Male

DRUGS (3)
  1. ACCUTANE [Suspect]
     Active Substance: ISOTRETINOIN
     Indication: Acne cystic
     Dosage: BOX OF 30 (SINGLE PACK OF 10 CAPSULES)
     Route: 048
  2. ACCUTANE [Suspect]
     Active Substance: ISOTRETINOIN
     Dosage: BOX OF 30 (SINGLE PACK OF 10 CAPSULES)
     Route: 048
  3. ACCUTANE [Suspect]
     Active Substance: ISOTRETINOIN
     Route: 048

REACTIONS (4)
  - Musculoskeletal discomfort [Recovered/Resolved]
  - Arthralgia [Recovering/Resolving]
  - Inappropriate schedule of product administration [Unknown]
  - Product dose omission in error [Unknown]

NARRATIVE: CASE EVENT DATE: 20240901
